FAERS Safety Report 7890227-9 (Version None)
Quarter: 2011Q4

REPORT INFORMATION
  Report Type: 
  Country: None (occurrence: None)
  Receive Date: 20111103
  Receipt Date: 20110805
  Transmission Date: 20120403
  Serious: No
  Sender: FDA-Public Use
  Company Number: US-AMGEN-USASP2011040081

PATIENT
  Age: 35 Year
  Sex: Female

DRUGS (3)
  1. ENBREL [Suspect]
     Indication: GUTTATE PSORIASIS
  2. HUMIRA [Concomitant]
     Dosage: UNK
  3. ENBREL [Suspect]
     Indication: PSORIASIS
     Dosage: 50 MG, 2 TIMES/WK

REACTIONS (4)
  - DRUG INEFFECTIVE [None]
  - NASOPHARYNGITIS [None]
  - PSORIASIS [None]
  - INJECTION SITE PAIN [None]
